FAERS Safety Report 6341856-5 (Version None)
Quarter: 2009Q3

REPORT INFORMATION
  Report Type: 
  Country: None (occurrence: None)
  Receive Date: 20090904
  Receipt Date: 20090902
  Transmission Date: 20100115
  Serious: Yes (Life-Threatening)
  Sender: FDA-Public Use
  Company Number: TG-B.I. PHARMACEUTICALS,INC./RIDGEFIELD-2009-DE-05776GD

PATIENT
  Age: 70 Year
  Sex: Male
  Weight: 72 kg

DRUGS (3)
  1. CLONIDINE [Suspect]
     Indication: SPINAL ANAESTHESIA
     Dosage: 30 MCG
     Route: 037
  2. MORPHINE [Suspect]
     Indication: SPINAL ANAESTHESIA
     Dosage: 100 MCG
     Route: 037
  3. BUPIVACAINE [Suspect]
     Indication: SPINAL ANAESTHESIA
     Dosage: 10 MG
     Route: 037

REACTIONS (4)
  - BRADYPNOEA [None]
  - HYPOXIA [None]
  - RESPIRATORY DEPRESSION [None]
  - SEDATION [None]
